FAERS Safety Report 6002822-2 (Version None)
Quarter: 2008Q4

REPORT INFORMATION
  Report Type: 
  Country: None (occurrence: None)
  Receive Date: 20081215
  Receipt Date: 20071113
  Transmission Date: 20090506
  Serious: No
  Sender: FDA-Public Use
  Company Number: US-AMGEN-KDL252400

PATIENT
  Sex: Female

DRUGS (1)
  1. ENBREL [Suspect]
     Indication: RHEUMATOID ARTHRITIS
     Route: 058
     Dates: start: 20071001

REACTIONS (6)
  - ARTHRALGIA [None]
  - DEPRESSION [None]
  - FALL [None]
  - JOINT STIFFNESS [None]
  - JOINT SWELLING [None]
  - SKIN LACERATION [None]
